FAERS Safety Report 7518946-4 (Version None)
Quarter: 2011Q2

REPORT INFORMATION
  Report Type: 
  Country: None (occurrence: None)
  Receive Date: 20110602
  Receipt Date: 20110525
  Transmission Date: 20111010
  Serious: Yes (Hospitalization, Other)
  Sender: FDA-Public Use
  Company Number: CH-US-EMD SERONO, INC.-7061523

PATIENT
  Sex: Female
  Weight: 54 kg

DRUGS (2)
  1. CALCIMAGON [Concomitant]
     Route: 048
     Dates: start: 20110101
  2. REBIF [Suspect]
     Indication: MULTIPLE SCLEROSIS
     Route: 058
     Dates: start: 20040101

REACTIONS (9)
  - VARICOSE VEIN [None]
  - OEDEMA PERIPHERAL [None]
  - RESTLESS LEGS SYNDROME [None]
  - PAIN IN EXTREMITY [None]
  - HIP SURGERY [None]
  - HEARING IMPAIRED [None]
  - NERVOUSNESS [None]
  - THROMBOSIS [None]
  - SENSATION OF HEAVINESS [None]
